FAERS Safety Report 12703445 (Version 2)
Quarter: 2016Q4

REPORT INFORMATION
  Report Type: Spontaneous
  Country: US (occurrence: US)
  Receive Date: 20160831
  Receipt Date: 20161012
  Transmission Date: 20170207
  Serious: No
  Sender: FDA-Public Use
  Company Number: US-PFIZER INC-2016407209

PATIENT
  Age: 48 Year
  Sex: Female
  Weight: 89.81 kg

DRUGS (7)
  1. VITAMIN D3 CALCIUM [Concomitant]
     Active Substance: CALCIUM\CHOLECALCIFEROL
     Dosage: UNK UNK, DAILY
  2. PRISTIQ EXTENDED-RELEASE [Suspect]
     Active Substance: DESVENLAFAXINE SUCCINATE
     Indication: ANXIETY
     Dosage: 50MG TABLETS ONCE A DAY
     Route: 048
     Dates: start: 201607, end: 20160818
  3. DICLOFENAC POTASSIUM. [Concomitant]
     Active Substance: DICLOFENAC POTASSIUM
     Indication: INFLAMMATION
     Dosage: 50MG EVERY OTHER DAY
  4. PRISTIQ EXTENDED-RELEASE [Suspect]
     Active Substance: DESVENLAFAXINE SUCCINATE
     Indication: DEPRESSION
  5. WELLBUTRIN [Suspect]
     Active Substance: BUPROPION HYDROCHLORIDE
     Indication: ANXIETY
     Dosage: 150MG EXTENDED RELEASE TABLET ONCE A DAY
     Route: 048
     Dates: start: 20160814, end: 20160818
  6. WELLBUTRIN [Suspect]
     Active Substance: BUPROPION HYDROCHLORIDE
     Indication: DEPRESSION
  7. ESTRADIOL. [Concomitant]
     Active Substance: ESTRADIOL
     Indication: HORMONE THERAPY
     Dosage: 2MG EVERY DAY

REACTIONS (6)
  - Feeling abnormal [Unknown]
  - Nausea [Unknown]
  - Dizziness [Unknown]
  - Vertigo [Recovering/Resolving]
  - Drug ineffective [Unknown]
  - Feeling hot [Unknown]

NARRATIVE: CASE EVENT DATE: 201608
